FAERS Safety Report 13205424 (Version 9)
Quarter: 2019Q2

REPORT INFORMATION
  Report Type: Report from Study
  Country: CN (occurrence: CN)
  Receive Date: 20170209
  Receipt Date: 20190510
  Transmission Date: 20190711
  Serious: Yes (Death, Hospitalization)
  Sender: FDA-Public Use
  Company Number: CN-ROCHE-1884761

PATIENT
  Age: 54 Year
  Sex: Female
  Weight: 48 kg

DRUGS (8)
  1. IRON [Concomitant]
     Active Substance: IRON
     Dosage: IRON POLYSACCHARIDE
     Route: 065
     Dates: start: 20161230
  2. TRASTUZUMAB EMTANSINE [Suspect]
     Active Substance: ADO-TRASTUZUMAB EMTANSINE
     Indication: HER-2 POSITIVE BREAST CANCER
     Dosage: LAST DOSE PRIOR TO SAE ON 30/DEC/2016 (172MG)
     Route: 042
     Dates: start: 20161118, end: 20170119
  3. DIAMMONIUM GLYCYRRHIZINATE [Concomitant]
     Active Substance: HERBALS\DIAMMONIUM GLYCYRRHIZINATE
     Dosage: ENTERIC COATED CAPSULE
     Route: 065
     Dates: start: 20161230
  4. PREGABALINE [Concomitant]
     Active Substance: PREGABALIN
     Route: 065
     Dates: start: 20161011
  5. ESTAZOLAM. [Concomitant]
     Active Substance: ESTAZOLAM
     Route: 065
     Dates: start: 20161213
  6. DIAMMONIUM GLYCYRRHIZINATE [Concomitant]
     Active Substance: HERBALS\DIAMMONIUM GLYCYRRHIZINATE
     Dosage: ENTERIC COATED CAPSULE
     Route: 065
     Dates: start: 20161209, end: 20161220
  7. DIAMMONIUM GLYCYRRHIZINATE [Concomitant]
     Active Substance: HERBALS\DIAMMONIUM GLYCYRRHIZINATE
     Dosage: ENTERIC COATED CAPSULE
     Route: 065
     Dates: start: 20161118, end: 20161119
  8. OXYCONTIN [Concomitant]
     Active Substance: OXYCODONE HYDROCHLORIDE
     Route: 065
     Dates: start: 201701, end: 201701

REACTIONS (1)
  - Multiple organ dysfunction syndrome [Fatal]

NARRATIVE: CASE EVENT DATE: 20170113
